FAERS Safety Report 13492104 (Version 1)
Quarter: 2017Q2

REPORT INFORMATION
  Report Type: Spontaneous
  Country: US (occurrence: US)
  Receive Date: 20170427
  Receipt Date: 20170427
  Transmission Date: 20170830
  Serious: Yes (Death)
  Sender: FDA-Public Use
  Company Number: US-LEADIANT BIOSCIENCES INC-2017STPI000317

PATIENT
  Sex: Male

DRUGS (9)
  1. METHIMAZOLE. [Concomitant]
     Active Substance: METHIMAZOLE
  2. PREDNISONE. [Concomitant]
     Active Substance: PREDNISONE
  3. PROTONIX                           /00661201/ [Concomitant]
     Active Substance: OMEPRAZOLE
  4. VALACYCLOVIR [Concomitant]
     Active Substance: VALACYCLOVIR HYDROCHLORIDE
  5. ERGOCALCIFEROL. [Concomitant]
     Active Substance: ERGOCALCIFEROL
  6. MATULANE [Suspect]
     Active Substance: PROCARBAZINE HYDROCHLORIDE
     Indication: HODGKIN^S DISEASE
     Dosage: 100 MG, QD
     Route: 048
     Dates: start: 20170302
  7. FLUCONAZOLE. [Concomitant]
     Active Substance: FLUCONAZOLE
  8. AMOXICILLIN. [Concomitant]
     Active Substance: AMOXICILLIN
  9. ALLOPURINOL. [Concomitant]
     Active Substance: ALLOPURINOL

REACTIONS (1)
  - Death [Fatal]
